FAERS Safety Report 9289074 (Version 4)
Quarter: 2014Q2

REPORT INFORMATION
  Report Type: Spontaneous
  Country: US (occurrence: US)
  Receive Date: 20130514
  Receipt Date: 20140507
  Transmission Date: 20141212
  Serious: Yes (Disabling, Other)
  Sender: FDA-Public Use
  Company Number: US-009507513-1305USA006210

PATIENT
  Sex: Male

DRUGS (4)
  1. PROSCAR [Suspect]
     Indication: ANDROGENETIC ALOPECIA
     Dosage: 5 MG, UNK
     Route: 048
     Dates: start: 2001, end: 20060518
  2. PROPECIA [Suspect]
     Indication: ANDROGENETIC ALOPECIA
     Dosage: 1 MG, UNK
     Route: 048
     Dates: start: 20060924, end: 20100124
  3. FINASTERIDE [Suspect]
     Indication: PRODUCT USED FOR UNKNOWN INDICATION
     Dosage: 5 MG, UNK
     Route: 048
     Dates: end: 20100124
  4. ULTRAM [Concomitant]
     Indication: ARTHRALGIA
     Dosage: UNK
     Dates: start: 1998, end: 2010

REACTIONS (17)
  - Joint resurfacing surgery [Unknown]
  - Oligospermia [Not Recovered/Not Resolved]
  - Teratospermia [Not Recovered/Not Resolved]
  - Testicular cyst [Unknown]
  - Drug administration error [Unknown]
  - Wrong technique in drug usage process [Unknown]
  - Joint dislocation [Unknown]
  - Scrotal pain [Unknown]
  - Shoulder operation [Unknown]
  - Back pain [Unknown]
  - Arthralgia [Unknown]
  - Dizziness [Unknown]
  - Hypertension [Unknown]
  - Anxiety disorder [Unknown]
  - Erectile dysfunction [Unknown]
  - Sexual dysfunction [Unknown]
  - Infertility [Unknown]
